FAERS Safety Report 7978367-7 (Version None)
Quarter: 2011Q4

REPORT INFORMATION
  Report Type: 
  Country: None (occurrence: None)
  Receive Date: 20111214
  Receipt Date: 20111209
  Transmission Date: 20120403
  Serious: Yes (Hospitalization, Other)
  Sender: FDA-Public Use
  Company Number: US-PFIZER INC-2010021213

PATIENT
  Sex: Female
  Weight: 56.689 kg

DRUGS (15)
  1. AMBIEN [Concomitant]
     Dosage: UNK
  2. REVATIO [Suspect]
     Indication: PULMONARY HYPERTENSION
     Dosage: 20 MG, 3X/DAY
     Dates: start: 20090101, end: 20090101
  3. PROAIR HFA [Concomitant]
     Dosage: AS NEEDED
  4. DEMADEX [Concomitant]
     Dosage: UNK
  5. DETROL LA [Concomitant]
     Dosage: UNK
  6. LANOXIN [Suspect]
     Indication: HEART VALVE INCOMPETENCE
     Dosage: UNK
     Dates: start: 20090601
  7. OXYGEN [Concomitant]
     Dosage: UNK
  8. KLONOPIN [Concomitant]
     Dosage: UNK
  9. REVATIO [Suspect]
     Dosage: UNK
  10. TRACLEER [Concomitant]
     Indication: PULMONARY HYPERTENSION
     Dosage: UNK
  11. REVATIO [Suspect]
     Dosage: 40 MG, 3X/DAY
     Dates: start: 20090101
  12. SPIRIVA [Concomitant]
     Dosage: UNK
  13. NEXIUM [Concomitant]
     Dosage: UNK
  14. VALTREX [Concomitant]
     Dosage: UNK
  15. COREG [Concomitant]
     Dosage: UNK

REACTIONS (6)
  - CARDIAC FAILURE CONGESTIVE [None]
  - HEART VALVE INCOMPETENCE [None]
  - DEAFNESS [None]
  - EAR PAIN [None]
  - LUNG DISORDER [None]
  - HYPOTENSION [None]
